FAERS Safety Report 8122320-X (Version None)
Quarter: 2012Q1

REPORT INFORMATION
  Report Type: 
  Country: None (occurrence: None)
  Receive Date: 20120208
  Receipt Date: 20120127
  Transmission Date: 20120608
  Serious: Yes (Other)
  Sender: FDA-Public Use
  Company Number: US-JNJFOC-20120201028

PATIENT
  Age: 47 Year
  Sex: Female

DRUGS (1)
  1. NEUTROGENA NORWEGIAN FORMULA HAND CREAM FRAGRANCE FREE [Suspect]
     Indication: DRY SKIN
     Route: 061

REACTIONS (2)
  - PHARYNGEAL OEDEMA [None]
  - CHEST DISCOMFORT [None]
